FAERS Safety Report 19828104 (Version 1)
Quarter: 2021Q3

REPORT INFORMATION
  Report Type: Spontaneous
  Country: GB (occurrence: GB)
  Receive Date: 20210914
  Receipt Date: 20210914
  Transmission Date: 20211014
  Serious: Yes (Hospitalization)
  Sender: FDA-Public Use
  Company Number: GB-ORGANON-O2109GBR000597

PATIENT
  Sex: Female

DRUGS (11)
  1. LABETALOL [Suspect]
     Active Substance: LABETALOL\LABETALOL HYDROCHLORIDE
     Dosage: UNK
  2. CO?AMOXICLAV PHARMANIAGA [Concomitant]
     Dosage: UNK
     Route: 042
     Dates: start: 20210307
  3. PARACETAMOL [Concomitant]
     Active Substance: ACETAMINOPHEN
     Dosage: UNK
     Dates: start: 20210307
  4. LOSARTAN POTASSIUM. [Suspect]
     Active Substance: LOSARTAN POTASSIUM
     Dosage: AT NIGHT
     Dates: start: 20210306, end: 20210309
  5. BISOPROLOL FUMARATE. [Suspect]
     Active Substance: BISOPROLOL FUMARATE
     Dosage: MORNING AND NIGHT
     Dates: start: 20210307
  6. ASPIRIN [ACETYLSALICYLIC ACID] [Concomitant]
     Active Substance: ASPIRIN
     Dosage: 75 MILLIGRAM
  7. CLOPIDOGREL [Concomitant]
     Active Substance: CLOPIDOGREL BISULFATE
     Dosage: 75 MILLIGRAM
     Dates: start: 20210307
  8. LOSARTAN POTASSIUM. [Suspect]
     Active Substance: LOSARTAN POTASSIUM
     Dosage: AT NIGHT
     Dates: start: 20210310, end: 20210312
  9. ATORVASTATIN [Concomitant]
     Active Substance: ATORVASTATIN
     Dosage: 40 MILLIGRAM
     Dates: start: 20210307
  10. LANSOPRAZOLE. [Concomitant]
     Active Substance: LANSOPRAZOLE
     Dosage: 30 MILLIGRAM
     Dates: start: 20210307
  11. THYROXINE [Concomitant]
     Active Substance: LEVOTHYROXINE
     Dosage: 100 MILLIGRAM

REACTIONS (12)
  - Back pain [Unknown]
  - Chest pain [Unknown]
  - Blood pressure increased [Unknown]
  - Eye irritation [Unknown]
  - Rhinorrhoea [Unknown]
  - Abdominal pain [Unknown]
  - Urinary sediment [Unknown]
  - Dry mouth [Unknown]
  - Lacrimation increased [Unknown]
  - Upper-airway cough syndrome [Unknown]
  - Urine output increased [Unknown]
  - Muscle spasms [Unknown]

NARRATIVE: CASE EVENT DATE: 202103
